FAERS Safety Report 9876284 (Version 1)
Quarter: 2014Q1

REPORT INFORMATION
  Report Type: Other
  Country: US (occurrence: US)
  Receive Date: 20140206
  Receipt Date: 20140206
  Transmission Date: 20141002
  Serious: No
  Sender: FDA-Public Use
  Company Number: US-ACORDA-ACO_36560_2013

PATIENT
  Sex: Female

DRUGS (5)
  1. AMPYRA [Suspect]
     Indication: GAIT DISTURBANCE
     Dosage: 10 MG, BID
     Route: 048
     Dates: start: 201303
  2. AMPYRA [Suspect]
     Dosage: 10 MG, QD
     Dates: start: 2013
  3. AMPYRA [Suspect]
     Dosage: 10 MG, QOD
  4. VITAMIN B12 [Concomitant]
     Indication: PRODUCT USED FOR UNKNOWN INDICATION
     Dosage: UNK,UNK
     Route: 065
     Dates: start: 201305
  5. VITAMIN B COMPLEX [Concomitant]
     Indication: PRODUCT USED FOR UNKNOWN INDICATION
     Dosage: UNK,UNK
     Route: 065
     Dates: start: 201305

REACTIONS (4)
  - Gait disturbance [Unknown]
  - Wrong technique in drug usage process [Unknown]
  - Therapeutic response unexpected [Unknown]
  - Asthenia [Unknown]
